FAERS Safety Report 18330577 (Version 1)
Quarter: 2020Q3

REPORT INFORMATION
  Report Type: Spontaneous
  Country: CA (occurrence: CA)
  Receive Date: 20200930
  Receipt Date: 20200930
  Transmission Date: 20201103
  Serious: Yes (Other)
  Sender: FDA-Public Use
  Company Number: CA-SHIRE-CA202004029

PATIENT

DRUGS (5)
  1. GAMMAGARD LIQUID [Suspect]
     Active Substance: HUMAN IMMUNOGLOBULIN G
     Indication: PRODUCT USED FOR UNKNOWN INDICATION
     Dosage: 300 MILLILITER, UNKNOWN
     Route: 065
     Dates: start: 20200108, end: 20200108
  2. GAMMAGARD LIQUID [Suspect]
     Active Substance: HUMAN IMMUNOGLOBULIN G
     Dosage: 300 UNK
     Route: 065
     Dates: start: 20200108, end: 20200109
  3. GAMMAGARD LIQUID [Suspect]
     Active Substance: HUMAN IMMUNOGLOBULIN G
     Dosage: 200 UNK
     Route: 065
     Dates: start: 20200109, end: 20200109
  4. GAMMAGARD LIQUID [Suspect]
     Active Substance: HUMAN IMMUNOGLOBULIN G
     Dosage: 200 UNK
     Route: 065
     Dates: start: 20200108, end: 20200108
  5. LASIX [Concomitant]
     Active Substance: FUROSEMIDE
     Indication: PRODUCT USED FOR UNKNOWN INDICATION

REACTIONS (9)
  - Transfusion reaction [Unknown]
  - Hypoxia [Unknown]
  - Pyrexia [Unknown]
  - Arthralgia [Unknown]
  - Dyspnoea [Unknown]
  - Tachycardia [Unknown]
  - Haemoglobin decreased [Unknown]
  - Hypertension [Unknown]
  - Tremor [Unknown]

NARRATIVE: CASE EVENT DATE: 20200108
